FAERS Safety Report 15952313 (Version 2)
Quarter: 2019Q1

REPORT INFORMATION
  Report Type: Spontaneous
  Country: US (occurrence: US)
  Receive Date: 20190212
  Receipt Date: 20190311
  Transmission Date: 20190417
  Serious: No
  Sender: FDA-Public Use
  Company Number: US-PFIZER INC-2018465250

PATIENT
  Age: 68 Year
  Sex: Female
  Weight: 74.84 kg

DRUGS (3)
  1. FLECTOR [Suspect]
     Active Substance: DICLOFENAC EPOLAMINE
     Indication: BACK DISORDER
  2. FLECTOR [Suspect]
     Active Substance: DICLOFENAC EPOLAMINE
     Indication: NEURALGIA
     Dosage: UNK UNK, AS NEEDED (12 HOURS ON AND 12 HOURS OFF)
  3. OXYCODONE [Concomitant]
     Active Substance: OXYCODONE
     Dosage: UNK UNK, 3X/DAY

REACTIONS (1)
  - Drug effective for unapproved indication [Unknown]
